FAERS Safety Report 16759553 (Version 1)
Quarter: 2019Q4

REPORT INFORMATION
  Report Type: Spontaneous
  Country: US (occurrence: US)
  Receive Date: 20190829
  Receipt Date: 20190829
  Transmission Date: 20200122
  Serious: Yes (Other)
  Sender: FDA-Public Use
  Company Number: None

PATIENT
  Age: 55 Year
  Sex: Female

DRUGS (4)
  1. MODAFINIL. [Concomitant]
     Active Substance: MODAFINIL
  2. LEMTRADA [Suspect]
     Active Substance: ALEMTUZUMAB
     Indication: MULTIPLE SCLEROSIS
     Dosage: ?          OTHER FREQUENCY:3 DAYS (YEAR 2);OTHER ROUTE:IV?
     Dates: start: 20160627, end: 20160629
  3. BANDRONATE SODIUM [Concomitant]
  4. CLARITIN [Concomitant]
     Active Substance: LORATADINE

REACTIONS (1)
  - Hypothyroidism [None]

NARRATIVE: CASE EVENT DATE: 20190824
